FAERS Safety Report 4719531-X (Version None)
Quarter: 2005Q3

REPORT INFORMATION
  Report Type: 
  Country: None (occurrence: None)
  Receive Date: 20050719
  Receipt Date: 20050719
  Transmission Date: 20060218
  Serious: Yes (Other)
  Sender: FDA-Public Use
  Company Number: None

PATIENT
  Sex: Male

DRUGS (4)
  1. ARIPIPRAZOLE 30 MG [Suspect]
     Indication: BIPOLAR DISORDER
     Dosage: 30 MG HS ORAL
     Route: 048
     Dates: start: 20050502, end: 20050523
  2. CLONAZEPAM [Concomitant]
  3. FUROSEMIDE [Concomitant]
  4. SIMVASTATIN [Concomitant]

REACTIONS (2)
  - AKATHISIA [None]
  - INSOMNIA [None]
